FAERS Safety Report 14336282 (Version 7)
Quarter: 2019Q3

REPORT INFORMATION
  Report Type: Spontaneous
  Country: JP (occurrence: JP)
  Receive Date: 20171229
  Receipt Date: 20190801
  Transmission Date: 20191004
  Serious: Yes (Hospitalization, Other)
  Sender: FDA-Public Use
  Company Number: PHHY2017JP189854

PATIENT
  Age: 8 Year
  Sex: Male
  Weight: 21 kg

DRUGS (5)
  1. PREDNISOLONE. [Concomitant]
     Active Substance: PREDNISOLONE
     Indication: NEPHROTIC SYNDROME
     Dosage: UNK
     Route: 065
  2. METHYLPREDNISOLONE. [Concomitant]
     Active Substance: METHYLPREDNISOLONE
     Indication: NEPHROTIC SYNDROME
     Dosage: UNK
     Route: 065
  3. RITUXIMAB. [Suspect]
     Active Substance: RITUXIMAB
     Indication: NEPHROTIC SYNDROME
     Dosage: 375 MG/1.73 M2, UNK
     Route: 041
  4. ACETAMINOPHEN. [Concomitant]
     Active Substance: ACETAMINOPHEN
     Indication: NEPHROTIC SYNDROME
     Dosage: UNK
     Route: 065
  5. NEORAL [Suspect]
     Active Substance: CYCLOSPORINE
     Indication: NEPHROTIC SYNDROME
     Dosage: 35 MG, BID
     Route: 048

REACTIONS (5)
  - Tachycardia [Unknown]
  - Glomerulonephritis minimal lesion [Unknown]
  - Infusion related reaction [Unknown]
  - Nephropathy toxic [Unknown]
  - Wheezing [Unknown]

NARRATIVE: CASE EVENT DATE: 20190518
